FAERS Safety Report 4270206-3 (Version None)
Quarter: 2004Q1

REPORT INFORMATION
  Report Type: 
  Country: None (occurrence: None)
  Receive Date: 20040112
  Receipt Date: 20040112
  Transmission Date: 20041129
  Serious: Yes (Hospitalization)
  Sender: FDA-Public Use
  Company Number: None

PATIENT
  Age: 77 Year
  Sex: Male

DRUGS (5)
  1. DIGOXIN [Suspect]
     Indication: CARDIAC FAILURE CONGESTIVE
     Dosage: 0.125 MG QD
     Dates: start: 20010201
  2. DILTIAZEM [Suspect]
     Indication: HYPERTENSION
     Dosage: 120 MG QAM
     Dates: start: 19980201
  3. IRBESARTAN [Concomitant]
  4. FUROSEMIDE [Concomitant]
  5. ASPIRIN [Concomitant]

REACTIONS (1)
  - BRADYCARDIA [None]
